FAERS Safety Report 4619130-4 (Version None)
Quarter: 2005Q1

REPORT INFORMATION
  Report Type: 
  Country: None (occurrence: None)
  Receive Date: 20050325
  Receipt Date: 20041221
  Transmission Date: 20050727
  Serious: Yes (Hospitalization)
  Sender: FDA-Public Use
  Company Number: US-GLAXOSMITHKLINE-A0538240A

PATIENT
  Age: 25 Year
  Sex: Female
  Weight: 47.7 kg

DRUGS (1)
  1. LAMICTAL [Suspect]
     Indication: PARTIAL SEIZURES
     Route: 048

REACTIONS (6)
  - ANAEMIA [None]
  - DEAFNESS [None]
  - DEAFNESS NEUROSENSORY [None]
  - HYPOACUSIS [None]
  - TINNITUS [None]
  - VESTIBULAR DISORDER [None]
